FAERS Safety Report 5418950-6 (Version None)
Quarter: 2007Q3

REPORT INFORMATION
  Report Type: 
  Country: None (occurrence: None)
  Receive Date: 20070817
  Receipt Date: 20070807
  Transmission Date: 20080115
  Serious: Yes (Other)
  Sender: FDA-Public Use
  Company Number: GB-PFIZER INC-2007065934

PATIENT
  Age: 57 Year
  Sex: Male

DRUGS (3)
  1. EPANUTIN SUSPENSION [Suspect]
     Indication: EPILEPSY
  2. NICORETTE [Interacting]
     Indication: SMOKING CESSATION THERAPY
  3. ANTIHYPERTENSIVES [Concomitant]

REACTIONS (3)
  - CONVULSION [None]
  - DRUG INTERACTION [None]
  - HYPOTENSION [None]
